FAERS Safety Report 5002448-3 (Version None)
Quarter: 2006Q2

REPORT INFORMATION
  Report Type: 
  Country: None (occurrence: None)
  Receive Date: 20060515
  Receipt Date: 20050414
  Transmission Date: 20061013
  Serious: Yes (Hospitalization, Disabling)
  Sender: FDA-Public Use
  Company Number: US-MERCK-0504USA02909

PATIENT
  Age: 56 Year
  Sex: Male
  Weight: 114 kg

DRUGS (10)
  1. VIOXX [Suspect]
     Indication: OSTEOARTHRITIS
     Route: 048
     Dates: start: 20000901, end: 20021127
  2. VIOXX [Suspect]
     Route: 048
     Dates: end: 20040701
  3. NORVASC [Concomitant]
     Indication: BLOOD PRESSURE
     Route: 065
     Dates: start: 20010330
  4. PAXIL [Concomitant]
     Indication: PANIC ATTACK
     Route: 065
     Dates: start: 20040101
  5. PRILOSEC [Concomitant]
     Indication: GASTRIC DISORDER
     Route: 065
  6. NEXIUM [Concomitant]
     Indication: GASTRIC DISORDER
     Route: 065
  7. PREVACID [Concomitant]
     Indication: GASTRIC DISORDER
     Route: 065
  8. GLUCOSAMINE [Concomitant]
     Route: 065
  9. CHONDROITIN [Concomitant]
     Route: 065
  10. VITAMINS (UNSPECIFIED) [Concomitant]
     Route: 065

REACTIONS (14)
  - BARRETT'S OESOPHAGUS [None]
  - CARDIAC STRESS TEST [None]
  - CHEST DISCOMFORT [None]
  - CHEST PAIN [None]
  - CORONARY ARTERY DISEASE [None]
  - GASTRIC POLYPS [None]
  - GASTRITIS [None]
  - GASTRITIS EROSIVE [None]
  - HAEMORRHOIDS [None]
  - HIATUS HERNIA [None]
  - MYOCARDIAL INFARCTION [None]
  - PANIC DISORDER [None]
  - POLYP [None]
  - SINUS BRADYCARDIA [None]
